FAERS Safety Report 13361271 (Version 3)
Quarter: 2021Q4

REPORT INFORMATION
  Report Type: Spontaneous
  Country: AU (occurrence: AU)
  Receive Date: 20170322
  Receipt Date: 20211223
  Transmission Date: 20220303
  Serious: Yes (Death, Hospitalization)
  Sender: FDA-Public Use
  Company Number: AU-MYLANLABS-2017M1017780

PATIENT
  Sex: Female

DRUGS (2)
  1. EPIPEN [Suspect]
     Active Substance: EPINEPHRINE
     Indication: Product used for unknown indication
     Dosage: 300 MICROGRAM, UNK
     Route: 030
  2. VENTOLIN [Suspect]
     Active Substance: ALBUTEROL SULFATE
     Indication: Product used for unknown indication
     Dosage: UNK

REACTIONS (4)
  - Drug ineffective [Fatal]
  - Condition aggravated [Unknown]
  - Device delivery system issue [Unknown]
  - Product quality issue [Unknown]
